FAERS Safety Report 6540457-3 (Version None)
Quarter: 2010Q1

REPORT INFORMATION
  Report Type: 
  Country: None (occurrence: None)
  Receive Date: 20100113
  Receipt Date: 20091228
  Transmission Date: 20100710
  Serious: Yes (Other)
  Sender: FDA-Public Use
  Company Number: 1000011175

PATIENT
  Age: 57 Year
  Sex: Female

DRUGS (11)
  1. MILNACIPRAN (MILNACIPRAN HYDROCHLORIDE) (TABLETS) [Suspect]
     Indication: DEPRESSION
     Dosage: ORAL
     Route: 048
  2. CARVEDILOL [Concomitant]
  3. AMLODIPINE BESYLATE [Concomitant]
  4. BROMAZEPAM [Concomitant]
  5. AMOXAPINE [Concomitant]
  6. PROPOFOL [Concomitant]
  7. FENTANYL CITRATE [Concomitant]
  8. ROCURONIUM BROMIDE [Concomitant]
  9. SEVOFLURANE [Concomitant]
  10. REMIFENTANIL HYDROCHLORIDE [Concomitant]
  11. ROPIVACAINE HYDROCHLORIDE HYDRATE [Concomitant]

REACTIONS (2)
  - ANAESTHETIC COMPLICATION [None]
  - PROCEDURAL HYPOTENSION [None]
